FAERS Safety Report 14966703 (Version 1)
Quarter: 2018Q2

REPORT INFORMATION
  Report Type: Spontaneous
  Country: FR (occurrence: FR)
  Receive Date: 20180604
  Receipt Date: 20180604
  Transmission Date: 20180711
  Serious: Yes (Other)
  Sender: FDA-Public Use
  Company Number: FR-TEVA-2018-FR-901235

PATIENT
  Age: 28 Year
  Sex: Female

DRUGS (3)
  1. JOSAMYCINE [Suspect]
     Active Substance: JOSAMYCIN
     Indication: COUGH
     Route: 048
     Dates: start: 20170222, end: 20170301
  2. SPIRAMYCINE [Suspect]
     Active Substance: SPIRAMYCIN
     Indication: CHLAMYDIAL INFECTION
     Route: 048
     Dates: start: 20170517, end: 20170529
  3. CLARITHROMYCIN. [Suspect]
     Active Substance: CLARITHROMYCIN
     Indication: COUGH
     Route: 048
     Dates: start: 20170218, end: 20170219

REACTIONS (1)
  - Pancreatitis [Recovered/Resolved]

NARRATIVE: CASE EVENT DATE: 20170223
